FAERS Safety Report 8685831 (Version 3)
Quarter: 2012Q4

REPORT INFORMATION
  Report Type: 
  Country: US (occurrence: US)
  Receive Date: 20120726
  Receipt Date: 20120917
  Transmission Date: 20130627
  Serious: No
  Sender: FDA-Public Use
  Company Number: US-ASTRAZENECA-2011SE52148

PATIENT
  Age: 76 Year
  Sex: Female

DRUGS (4)
  1. TOPROL XL [Suspect]
     Route: 048
  2. SEROQUEL [Suspect]
     Indication: BIPOLAR DISORDER
     Route: 048
  3. SEROQUEL [Suspect]
     Indication: BIPOLAR DISORDER
     Route: 048
  4. SEROQUEL [Suspect]
     Indication: BIPOLAR DISORDER
     Route: 048

REACTIONS (11)
  - Bipolar disorder [Unknown]
  - Road traffic accident [Unknown]
  - Feeling abnormal [Unknown]
  - Feeling abnormal [Unknown]
  - Adverse event [Unknown]
  - Influenza [Unknown]
  - Malaise [Unknown]
  - Depression [Unknown]
  - Memory impairment [Unknown]
  - Therapeutic response decreased [Unknown]
  - Drug dose omission [Unknown]
